FAERS Safety Report 7999058-2 (Version None)
Quarter: 2011Q4

REPORT INFORMATION
  Report Type: 
  Country: None (occurrence: None)
  Receive Date: 20111221
  Receipt Date: 20111213
  Transmission Date: 20120403
  Serious: Yes (Other)
  Sender: FDA-Public Use
  Company Number: PHHY2011MX109507

PATIENT
  Sex: Female

DRUGS (3)
  1. GLYBURIDE [Concomitant]
     Indication: BLOOD GLUCOSE
     Dates: start: 19881201
  2. ONBREZ [Suspect]
     Indication: CHRONIC OBSTRUCTIVE PULMONARY DISEASE
     Dosage: 300 UG, QD
  3. ENALAPRIL MALEATE [Concomitant]
     Indication: HYPERTENSION
     Dates: start: 19881201

REACTIONS (1)
  - LIMB DISCOMFORT [None]
